FAERS Safety Report 8519726-3 (Version None)
Quarter: 2012Q3

REPORT INFORMATION
  Report Type: 
  Country: None (occurrence: None)
  Receive Date: 20120719
  Receipt Date: 20120710
  Transmission Date: 20120928
  Serious: Yes (Death, Other)
  Sender: FDA-Public Use
  Company Number: US-BIOGENIDEC-2012BI000757

PATIENT
  Age: 69 Year
  Sex: Female

DRUGS (3)
  1. AVONEX [Suspect]
     Route: 030
     Dates: start: 20050201, end: 20070301
  2. AVONEX [Suspect]
     Indication: MULTIPLE SCLEROSIS
     Route: 030
     Dates: start: 20030101
  3. AVONEX [Suspect]
     Route: 030
     Dates: start: 20110301

REACTIONS (3)
  - CEREBRAL HAEMORRHAGE [None]
  - ANEURYSM RUPTURED [None]
  - CEREBROVASCULAR ACCIDENT [None]
